FAERS Safety Report 26108318 (Version 2)
Quarter: 2025Q4

REPORT INFORMATION
  Report Type: Spontaneous
  Country: BR (occurrence: BR)
  Receive Date: 20251201
  Receipt Date: 20251204
  Transmission Date: 20260118
  Serious: Yes (Other)
  Sender: MYLAN
  Company Number: BR-MYLANLABS-2025M1100658

PATIENT
  Sex: Female
  Weight: 79 kg

DRUGS (7)
  1. ALPRAZOLAM [Suspect]
     Active Substance: ALPRAZOLAM
     Indication: Depression
     Dosage: 0.5 MILLIGRAM, BID (TWICE A DAY, ONE TABLET IN THE MORNING AND ONE TABLET AT NIGHT)
  2. ALPRAZOLAM [Suspect]
     Active Substance: ALPRAZOLAM
     Indication: Anxiety
     Dosage: 0.5 MILLIGRAM, BID (TWICE A DAY, ONE TABLET IN THE MORNING AND ONE TABLET AT NIGHT)
  3. ALPRAZOLAM [Suspect]
     Active Substance: ALPRAZOLAM
     Indication: Hypertension
  4. HYDROCHLOROTHIAZIDE [Concomitant]
     Active Substance: HYDROCHLOROTHIAZIDE
     Indication: Hypertension
     Dosage: 25 MILLIGRAM, BID (ONE TABLET IN THE AFTERNOON AND ONE TABLE AT NIGHT BEFORE SLEEP)
  5. VALSARTAN [Concomitant]
     Active Substance: VALSARTAN
     Indication: Hypertension
     Dosage: 160 MILLIGRAM, BID (ONE TABLET IN THE AFTERNOON AND ONE TABLE AT NIGHT BEFORE SLEEP)
  6. CLONIDINE [Concomitant]
     Active Substance: CLONIDINE
     Indication: Hypertension
     Dosage: 0.15 MILLIGRAM, BID (ONE TABLET IN THE AFTERNOON AND ONE TABLE AT NIGHT BEFORE SLEEP)
  7. APRESOLINE HYDROCHLORIDE [Concomitant]
     Active Substance: HYDRALAZINE HYDROCHLORIDE
     Indication: Hypertension
     Dosage: 50 MILLIGRAM, BID (ONE TABLET IN THE AFTERNOON AND ONE TABLE AT NIGHT BEFORE SLEEP)

REACTIONS (9)
  - Drug dependence [Not Recovered/Not Resolved]
  - Adverse drug reaction [Unknown]
  - Depression [Unknown]
  - Panic disorder [Unknown]
  - Crying [Unknown]
  - Insomnia [Unknown]
  - Product use issue [Not Recovered/Not Resolved]
  - Drug ineffective [Not Recovered/Not Resolved]
  - Product quality issue [Unknown]
